FAERS Safety Report 25813326 (Version 3)
Quarter: 2025Q4

REPORT INFORMATION
  Report Type: Spontaneous
  Country: BA (occurrence: BA)
  Receive Date: 20250917
  Receipt Date: 20251114
  Transmission Date: 20260118
  Serious: Yes (Life-Threatening, Hospitalization, Other)
  Sender: PFIZER
  Company Number: BA-PFIZER INC-PV202500110448

PATIENT
  Age: 50 Year
  Sex: Male
  Weight: 88 kg

DRUGS (5)
  1. FRAGMIN [Suspect]
     Active Substance: DALTEPARIN SODIUM
     Dosage: 5000 IU, 1X/DAY
     Dates: start: 20250826, end: 20250826
  2. FRAGMIN [Suspect]
     Active Substance: DALTEPARIN SODIUM
     Dosage: 5000 IU, 2X/DAY
     Route: 058
     Dates: start: 20250827
  3. FRAGMIN [Suspect]
     Active Substance: DALTEPARIN SODIUM
     Dosage: X2
     Route: 058
     Dates: start: 20250831
  4. FRAGMIN [Suspect]
     Active Substance: DALTEPARIN SODIUM
     Dosage: 17500 IU, 1X/DAY
     Route: 058
     Dates: start: 20250901
  5. FRAGMIN [Suspect]
     Active Substance: DALTEPARIN SODIUM
     Dosage: 10000 IU, 2X/DAY
     Route: 058
     Dates: start: 20250902

REACTIONS (2)
  - Drug ineffective [Recovering/Resolving]
  - Dyspnoea [Recovering/Resolving]

NARRATIVE: CASE EVENT DATE: 20250826
